FAERS Safety Report 18923829 (Version 2)
Quarter: 2021Q2

REPORT INFORMATION
  Report Type: Spontaneous
  Country: US (occurrence: US)
  Receive Date: 20210222
  Receipt Date: 20210406
  Transmission Date: 20210717
  Serious: No
  Sender: FDA-Public Use
  Company Number: US-BAYER-2021-069140

PATIENT
  Sex: Female

DRUGS (2)
  1. CLIMARA [Suspect]
     Active Substance: ESTRADIOL
     Dosage: UNK
     Route: 062
     Dates: start: 20201227, end: 20210121
  2. CLIMARA [Suspect]
     Active Substance: ESTRADIOL
     Route: 062

REACTIONS (3)
  - Product adhesion issue [None]
  - Product adhesion issue [None]
  - Underdose [None]

NARRATIVE: CASE EVENT DATE: 2020
